FAERS Safety Report 8332508-0 (Version None)
Quarter: 2012Q2

REPORT INFORMATION
  Report Type: 
  Country: None (occurrence: None)
  Receive Date: 20120503
  Receipt Date: 20120430
  Transmission Date: 20120825
  Serious: No
  Sender: FDA-Public Use
  Company Number: US-PFIZER INC-2012105988

PATIENT
  Sex: Female
  Weight: 58.05 kg

DRUGS (2)
  1. BACLOFEN [Concomitant]
     Indication: MUSCLE SPASMS
     Dosage: 10 MG, THREE TIMES A DAY
     Route: 048
  2. LYRICA [Suspect]
     Indication: NERVE INJURY
     Dosage: 30MG THREE TIMES A DAY
     Route: 048
     Dates: start: 20110601, end: 20120401

REACTIONS (1)
  - FACIAL PAIN [None]
